FAERS Safety Report 14226361 (Version 4)
Quarter: 2019Q3

REPORT INFORMATION
  Report Type: Report from Study
  Country: BE (occurrence: GB)
  Receive Date: 20171127
  Receipt Date: 20190812
  Transmission Date: 20191004
  Serious: Yes (Hospitalization)
  Sender: FDA-Public Use
  Company Number: BE-SA-2017SA227949

PATIENT
  Age: 65 Year
  Sex: Male

DRUGS (7)
  1. CAPECITABINE. [Suspect]
     Active Substance: CAPECITABINE
     Indication: COLORECTAL CANCER
     Dosage: UNK UNK,UNK
     Route: 048
     Dates: start: 20170525, end: 20171130
  2. DEXAMETHASONE. [Concomitant]
     Active Substance: DEXAMETHASONE
     Dosage: 4 MG, QD
     Route: 048
     Dates: start: 20171113
  3. FORTISIP [Concomitant]
     Active Substance: CARBOHYDRATES\FATTY ACIDS\MINERALS\PROTEIN\VITAMINS
     Indication: DECREASED APPETITE
     Dosage: UNK, UNK
     Route: 048
     Dates: start: 20170622
  4. DOCUSATE SODIUM. [Concomitant]
     Active Substance: DOCUSATE SODIUM
     Dosage: 100 MG
     Route: 048
     Dates: start: 20171114
  5. PERINDOPRIL [Concomitant]
     Active Substance: PERINDOPRIL
     Indication: HYPERTENSION
     Dosage: UNK
     Route: 048
     Dates: start: 20170615
  6. AFLIBERCEPT [Suspect]
     Active Substance: AFLIBERCEPT
     Dosage: UNK UNK,QCY
     Route: 042
     Dates: start: 20170525, end: 20170525
  7. AFLIBERCEPT [Suspect]
     Active Substance: AFLIBERCEPT
     Indication: COLORECTAL CANCER
     Dosage: UNK UNK,QCY
     Route: 042
     Dates: start: 20171013, end: 20171013

REACTIONS (2)
  - Proctalgia [Recovered/Resolved]
  - Chills [Recovered/Resolved]

NARRATIVE: CASE EVENT DATE: 20171112
